FAERS Safety Report 10912581 (Version 1)
Quarter: 2015Q1

REPORT INFORMATION
  Report Type: Spontaneous
  Country: US (occurrence: None)
  Receive Date: 20150310
  Receipt Date: 20150310
  Transmission Date: 20150721
  Serious: No
  Sender: FDA-Public Use
  Company Number: None

PATIENT
  Age: 66 Year
  Sex: Female
  Weight: 58.97 kg

DRUGS (3)
  1. CARBIDOPA/LEVADOPA [Concomitant]
  2. ROPINIROLE HCL [Suspect]
     Active Substance: ROPINIROLE HYDROCHLORIDE
     Indication: PARKINSONISM
     Route: 048
     Dates: start: 20150226, end: 20150307
  3. GUMMY VITAMINS [Concomitant]

REACTIONS (14)
  - Muscular weakness [None]
  - Abasia [None]
  - Tension [None]
  - Crying [None]
  - Muscle spasms [None]
  - Psychiatric symptom [None]
  - Drug withdrawal syndrome [None]
  - Emotional disorder [None]
  - Product quality issue [None]
  - Medication residue present [None]
  - Insomnia [None]
  - Product solubility abnormal [None]
  - Constipation [None]
  - Infrequent bowel movements [None]

NARRATIVE: CASE EVENT DATE: 20150307
